FAERS Safety Report 25887111 (Version 1)
Quarter: 2025Q4

REPORT INFORMATION
  Report Type: Spontaneous
  Country: US (occurrence: US)
  Receive Date: 20251006
  Receipt Date: 20251006
  Transmission Date: 20260118
  Serious: No
  Sender: BAYER HEALTHCARE PHARMACEUTICALS INC.
  Company Number: US-BAYER-2025A129285

PATIENT
  Age: 73 Year
  Sex: Male

DRUGS (2)
  1. NUBEQA [Suspect]
     Active Substance: DAROLUTAMIDE
     Dosage: 2 TABLETS
     Route: 048
  2. NUBEQA [Suspect]
     Active Substance: DAROLUTAMIDE
     Dosage: 4 TABLETS
     Route: 048
     Dates: end: 20250928

REACTIONS (3)
  - Flatulence [None]
  - Feeling abnormal [None]
  - Incorrect dose administered [None]

NARRATIVE: CASE EVENT DATE: 20250829
